FAERS Safety Report 4284013-9 (Version None)
Quarter: 2004Q1

REPORT INFORMATION
  Report Type: 
  Country: None (occurrence: None)
  Receive Date: 20040203
  Receipt Date: 20040122
  Transmission Date: 20041129
  Serious: Yes (Other)
  Sender: FDA-Public Use
  Company Number: US-BRISTOL-MYERS SQUIBB COMPANY-12488847

PATIENT
  Age: 73 Year
  Sex: Female
  Weight: 86 kg

DRUGS (8)
  1. TEQUIN [Suspect]
     Indication: PNEUMONIA
     Route: 048
     Dates: start: 20020101, end: 20040101
  2. GLYBURIDE [Suspect]
     Indication: BLOOD GLUCOSE INCREASED
     Dates: start: 20040101, end: 20040101
  3. ERYTHROMYCIN [Concomitant]
  4. INDERAL [Concomitant]
     Dates: start: 19890101
  5. PROCARDIA [Concomitant]
     Dates: start: 19890101
  6. LASIX [Concomitant]
     Dates: start: 19890101
  7. TYLENOL W/ CODEINE NO. 3 [Concomitant]
     Dates: start: 19890101
  8. MEPROBAMATE [Concomitant]
     Dates: start: 19890101

REACTIONS (2)
  - BLOOD GLUCOSE INCREASED [None]
  - HYPERSENSITIVITY [None]
